FAERS Safety Report 18266830 (Version 1)
Quarter: 2020Q3

REPORT INFORMATION
  Report Type: Report from Study
  Country: GB (occurrence: GB)
  Receive Date: 20200915
  Receipt Date: 20200915
  Transmission Date: 20201103
  Serious: Yes (Other)
  Sender: FDA-Public Use
  Company Number: GB-BRISTOL-MYERS SQUIBB COMPANY-BMS-2018-039022

PATIENT
  Sex: Female

DRUGS (1)
  1. ABATACEPT [Suspect]
     Active Substance: ABATACEPT
     Indication: MULTIPLE SCLEROSIS
     Dosage: 125 MG, QWK
     Route: 058
     Dates: start: 20180423

REACTIONS (4)
  - Lower respiratory tract infection [Unknown]
  - Occupational exposure to product [Unknown]
  - Needle issue [Unknown]
  - Intentional product use issue [Unknown]
